FAERS Safety Report 11759467 (Version 1)
Quarter: 2015Q4

REPORT INFORMATION
  Report Type: Spontaneous
  Country: US (occurrence: US)
  Receive Date: 20151120
  Receipt Date: 20151120
  Transmission Date: 20160304
  Serious: No
  Sender: FDA-Public Use
  Company Number: US-SHIRE-US201514026

PATIENT

DRUGS (4)
  1. OXYGEN. [Concomitant]
     Active Substance: OXYGEN
     Indication: CARDIAC FAILURE CONGESTIVE
     Dosage: UNK
     Route: 065
  2. GATTEX [Suspect]
     Active Substance: TEDUGLUTIDE\WATER
     Indication: SHORT-BOWEL SYNDROME
     Dosage: 1.09 DF, 1X/DAY:QD
     Route: 058
     Dates: start: 20151027
  3. PARENTERAL [Concomitant]
     Indication: NUTRITIONAL SUPPLEMENTATION
     Dosage: UNK
     Route: 065
  4. ZOFRAN [Concomitant]
     Active Substance: ONDANSETRON HYDROCHLORIDE
     Indication: PRODUCT USED FOR UNKNOWN INDICATION
     Dosage: UNK
     Route: 065

REACTIONS (5)
  - Joint swelling [Unknown]
  - Oedema peripheral [Recovered/Resolved]
  - Nausea [Unknown]
  - Dyspnoea [Unknown]
  - Vomiting [Unknown]

NARRATIVE: CASE EVENT DATE: 201511
